FAERS Safety Report 8248089-6 (Version None)
Quarter: 2012Q1

REPORT INFORMATION
  Report Type: 
  Country: None (occurrence: None)
  Receive Date: 20120330
  Receipt Date: 20120321
  Transmission Date: 20120608
  Serious: Yes (Other)
  Sender: FDA-Public Use
  Company Number: CA-JNJFOC-20120311835

PATIENT
  Sex: Male
  Weight: 83 kg

DRUGS (16)
  1. ASPIRIN [Concomitant]
     Route: 065
  2. REMICADE [Suspect]
     Route: 042
     Dates: start: 20100628
  3. SOLU-CORTEF [Concomitant]
     Indication: PREMEDICATION
     Route: 042
  4. HYDROCHLOROTHIAZIDE [Concomitant]
     Route: 065
  5. REMICADE [Suspect]
     Indication: COLITIS ULCERATIVE
     Route: 042
     Dates: start: 20120321
  6. TYLENOL W/ CODEINE NO. 3 [Concomitant]
     Route: 065
  7. VERAPAMIL [Concomitant]
     Route: 065
  8. ZOPICLONE [Concomitant]
     Route: 065
  9. PREDNISONE TAB [Concomitant]
     Route: 065
  10. MESALAMINE [Concomitant]
     Route: 065
  11. SLOW-K [Concomitant]
     Route: 065
  12. FLONASE [Concomitant]
     Route: 065
  13. CORTIFOAM [Concomitant]
     Route: 065
  14. VITAMIN D [Concomitant]
     Route: 065
  15. CRESTOR [Concomitant]
     Route: 065
  16. CITALOPRAM HYDROBROMIDE [Concomitant]
     Route: 065

REACTIONS (5)
  - FEELING COLD [None]
  - CHILLS [None]
  - NEOPLASM [None]
  - BACK PAIN [None]
  - INFUSION RELATED REACTION [None]
